FAERS Safety Report 21935819 (Version 7)
Quarter: 2023Q4

REPORT INFORMATION
  Report Type: Report from Study
  Country: US (occurrence: US)
  Receive Date: 20230201
  Receipt Date: 20231205
  Transmission Date: 20240110
  Serious: Yes (Other)
  Sender: FDA-Public Use
  Company Number: US-002147023-NVSC2023US017380

PATIENT
  Age: 64 Year
  Sex: Male

DRUGS (3)
  1. COSENTYX [Suspect]
     Active Substance: SECUKINUMAB
     Indication: Psoriasis
     Dosage: 300 MG, QW
     Route: 058
  2. COSENTYX [Suspect]
     Active Substance: SECUKINUMAB
     Dosage: 300 MG, QMO
     Route: 058
  3. COSENTYX [Suspect]
     Active Substance: SECUKINUMAB
     Dosage: UNK (3 WEEKS AGO)
     Route: 065

REACTIONS (15)
  - Atrial fibrillation [Unknown]
  - Jaw fracture [Unknown]
  - Accident [Unknown]
  - Pain [Unknown]
  - Hypertension [Unknown]
  - Middle insomnia [Unknown]
  - Arthritis [Unknown]
  - Arthropathy [Unknown]
  - Psoriasis [Not Recovered/Not Resolved]
  - Rash erythematous [Unknown]
  - Skin plaque [Unknown]
  - Skin exfoliation [Unknown]
  - Pruritus [Unknown]
  - Product dose omission issue [Unknown]
  - Therapeutic product effect incomplete [Unknown]

NARRATIVE: CASE EVENT DATE: 20230510
